FAERS Safety Report 9769193 (Version 1)
Quarter: 2013Q4

REPORT INFORMATION
  Report Type: Spontaneous
  Country: US (occurrence: None)
  Receive Date: 20131217
  Receipt Date: 20131217
  Transmission Date: 20140711
  Serious: Yes (Death)
  Sender: FDA-Public Use
  Company Number: None

PATIENT
  Age: 56 Year
  Sex: Male
  Weight: 109 kg

DRUGS (7)
  1. LETAIRIS [Suspect]
     Indication: PULMONARY HYPERTENSION
     Route: 048
     Dates: start: 201106, end: 20131126
  2. LETAIRIS [Concomitant]
  3. PROPRANOLOL [Concomitant]
  4. FLONASE [Concomitant]
  5. SILDENAFIL [Concomitant]
  6. FUROSEMIDE [Concomitant]
  7. KCL [Concomitant]

REACTIONS (4)
  - Asthenia [None]
  - Dysstasia [None]
  - Loss of consciousness [None]
  - Malaise [None]
